FAERS Safety Report 10092755 (Version 1)
Quarter: 2014Q2

REPORT INFORMATION
  Report Type: Spontaneous
  Country: US (occurrence: US)
  Receive Date: 20140421
  Receipt Date: 20140421
  Transmission Date: 20141212
  Serious: No
  Sender: FDA-Public Use
  Company Number: US-SANOFI-AVENTIS-2013SA065477

PATIENT
  Age: 82 Year
  Sex: Female

DRUGS (1)
  1. ALLEGRA [Suspect]
     Indication: MULTIPLE ALLERGIES
     Route: 048

REACTIONS (2)
  - Somnolence [Recovered/Resolved]
  - Limb discomfort [Recovered/Resolved]
